FAERS Safety Report 8011586-2 (Version None)
Quarter: 2011Q4

REPORT INFORMATION
  Report Type: 
  Country: None (occurrence: None)
  Receive Date: 20111228
  Receipt Date: 20111216
  Transmission Date: 20120403
  Serious: Yes (Other)
  Sender: FDA-Public Use
  Company Number: GB-WATSON-2011-21969

PATIENT
  Age: 35 Year
  Sex: Female

DRUGS (8)
  1. TOPIRAMATE [Suspect]
     Indication: CONVULSION
     Dosage: UNK
  2. CLOBAZAM [Suspect]
     Indication: CONVULSION
     Dosage: UNK
  3. KEPPRA [Suspect]
     Indication: CONVULSION
     Dosage: 1500 MG, BID
  4. CARBAMAZEPINE [Suspect]
     Indication: CONVULSION
     Dosage: 200 MG, BID
  5. VIMPAT [Suspect]
     Indication: CONVULSION
     Dosage: 100 MG, BID
  6. VIMPAT [Suspect]
     Dosage: 50 MG, BID
  7. VIMPAT [Suspect]
     Dosage: UNK
  8. VIMPAT [Suspect]
     Dosage: 150 MG, BID

REACTIONS (13)
  - SELF ESTEEM DECREASED [None]
  - SLOW SPEECH [None]
  - STEVENS-JOHNSON SYNDROME [None]
  - AURA [None]
  - DRUG HYPERSENSITIVITY [None]
  - ANXIETY [None]
  - TEARFULNESS [None]
  - FATIGUE [None]
  - DIPLOPIA [None]
  - MEMORY IMPAIRMENT [None]
  - URINARY INCONTINENCE [None]
  - ABNORMAL BEHAVIOUR [None]
  - CONVULSION [None]
